FAERS Safety Report 7042678-2 (Version None)
Quarter: 2010Q4

REPORT INFORMATION
  Report Type: 
  Country: None (occurrence: None)
  Receive Date: 20101013
  Receipt Date: 20100715
  Transmission Date: 20110411
  Serious: No
  Sender: FDA-Public Use
  Company Number: US-ASTRAZENECA-2010SE33102

PATIENT
  Age: 613 Month
  Sex: Female

DRUGS (2)
  1. SYMBICORT [Suspect]
     Dosage: 640 MCG BID
     Route: 055
  2. VENTOLIN [Concomitant]

REACTIONS (1)
  - DYSPNOEA [None]
